FAERS Safety Report 21710990 (Version 3)
Quarter: 2023Q1

REPORT INFORMATION
  Report Type: Spontaneous
  Country: US (occurrence: US)
  Receive Date: 20221212
  Receipt Date: 20230209
  Transmission Date: 20230417
  Serious: No
  Sender: FDA-Public Use
  Company Number: US-GSKCCFUS-Case-01572915_AE-88890

PATIENT
  Sex: Female

DRUGS (1)
  1. TRELEGY ELLIPTA [Suspect]
     Active Substance: FLUTICASONE FUROATE\UMECLIDINIUM BROMIDE\VILANTEROL TRIFENATATE
     Indication: Product used for unknown indication
     Dosage: 1 PUFF(S), QD 100/62.5/25 MCG 30D
     Route: 055

REACTIONS (6)
  - Incorrect dose administered [Unknown]
  - Product storage error [Unknown]
  - Product dose omission issue [Unknown]
  - Product dispensing error [Unknown]
  - Product packaging quantity issue [Unknown]
  - Product complaint [Unknown]
